FAERS Safety Report 4356736-4 (Version None)
Quarter: 2004Q2

REPORT INFORMATION
  Report Type: 
  Country: None (occurrence: None)
  Receive Date: 20040507
  Receipt Date: 20040416
  Transmission Date: 20050107
  Serious: Yes (Hospitalization)
  Sender: FDA-Public Use
  Company Number: US_0403101778

PATIENT
  Age: 81 Year
  Sex: Male

DRUGS (9)
  1. HUMULIN N [Suspect]
     Indication: DIABETES MELLITUS
  2. HUMULIN R [Suspect]
     Indication: DIABETES MELLITUS
  3. ATENOLOL [Concomitant]
  4. ACETYLSALICYLIC ACID SRT [Concomitant]
  5. LIPITOR [Concomitant]
  6. IMDUR (ISOSORBIDE) [Concomitant]
  7. PLAVIX [Concomitant]
  8. PROCARDIA XL [Concomitant]
  9. MICARDIS HCT [Concomitant]

REACTIONS (2)
  - GAIT DISTURBANCE [None]
  - TRANSIENT ISCHAEMIC ATTACK [None]
